FAERS Safety Report 10044852 (Version 1)
Quarter: 2014Q1

REPORT INFORMATION
  Report Type: Spontaneous
  Country: DE (occurrence: DE)
  Receive Date: 20140328
  Receipt Date: 20140328
  Transmission Date: 20141002
  Serious: Yes (Other)
  Sender: FDA-Public Use
  Company Number: DE-ACTAVIS-2014-05585

PATIENT
  Age: 68 Year
  Sex: Female
  Weight: 57 kg

DRUGS (1)
  1. CARBOPLATIN ACTAVIS [Suspect]
     Indication: CERVIX CARCINOMA
     Dosage: 392 MG, DAILY
     Dates: start: 20140226, end: 20140226

REACTIONS (2)
  - Anaphylactic shock [Recovered/Resolved]
  - Rash [Recovered/Resolved]
